FAERS Safety Report 12177155 (Version 5)
Quarter: 2016Q4

REPORT INFORMATION
  Report Type: Report from Study
  Country: JP (occurrence: JP)
  Receive Date: 20160315
  Receipt Date: 20161028
  Transmission Date: 20170207
  Serious: Yes (Death, Hospitalization, Other)
  Sender: FDA-Public Use
  Company Number: JP-BRISTOL-MYERS SQUIBB COMPANY-BMS-2016-017541

PATIENT
  Age: 64 Year
  Sex: Male
  Weight: 62 kg

DRUGS (27)
  1. TRAVELMIN                          /00141802/ [Concomitant]
     Indication: NAUSEA
     Dosage: 1 TAB, TID
     Route: 048
     Dates: start: 20160129, end: 20160209
  2. MAGLAX [Concomitant]
     Active Substance: MAGNESIUM OXIDE
     Indication: CONSTIPATION
     Dosage: 330 MG, BID
     Route: 048
     Dates: start: 20160129
  3. LANSOPRAZOLE. [Concomitant]
     Active Substance: LANSOPRAZOLE
     Indication: GASTRIC ULCER
     Dosage: 30 MG, QD
     Route: 048
     Dates: start: 20160129
  4. CALONAL [Concomitant]
     Active Substance: ACETAMINOPHEN
     Indication: PAIN
     Dosage: 400 MG, UNK
     Route: 048
     Dates: start: 20160129, end: 20160209
  5. IPILIMUMAB [Suspect]
     Active Substance: IPILIMUMAB
     Indication: MALIGNANT MELANOMA
     Dosage: 150 MG, UNK
     Route: 042
     Dates: start: 20160129
  6. RINDERON                           /00008501/ [Concomitant]
     Active Substance: BETAMETHASONE
     Indication: MALAISE
     Dosage: 1 G, UNK
     Route: 048
     Dates: start: 20160301, end: 20160412
  7. MS CONTIN [Concomitant]
     Active Substance: MORPHINE SULFATE
     Indication: ABDOMINAL DISTENSION
     Route: 065
  8. NOVAMIN                            /00013301/ [Concomitant]
     Active Substance: PROCHLORPERAZINE MALEATE
     Indication: NAUSEA
     Dosage: 5 MG, UNK
     Route: 048
     Dates: start: 20160209, end: 20160302
  9. LUNESTA [Concomitant]
     Active Substance: ESZOPICLONE
     Indication: INSOMNIA
     Dosage: 1 MG, QD
     Route: 048
     Dates: start: 20160209, end: 20160302
  10. MS CONTIN [Concomitant]
     Active Substance: MORPHINE SULFATE
     Indication: CANCER PAIN
     Dosage: 20 MG, BID
     Route: 048
     Dates: start: 20160218, end: 20160303
  11. IPILIMUMAB [Suspect]
     Active Substance: IPILIMUMAB
     Indication: PRODUCT USED FOR UNKNOWN INDICATION
     Dosage: 150 MG, UNK
     Route: 042
     Dates: start: 20160219
  12. ANTEBATE [Concomitant]
     Active Substance: BETAMETHASONE DIPROPIONATE
     Indication: ECZEMA
     Dosage: 2 G, UNK
     Route: 065
     Dates: start: 20151218, end: 20160308
  13. BELSOMRA [Concomitant]
     Active Substance: SUVOREXANT
     Indication: INSOMNIA
     Dosage: 15 MG, UNK
     Route: 048
     Dates: start: 20160303
  14. ATARAX-P                           /00058402/ [Concomitant]
     Active Substance: HYDROXYZINE HYDROCHLORIDE
     Indication: RESTLESSNESS
     Dosage: 25 MG, UNK
     Route: 042
     Dates: start: 20160302
  15. ANTEBATE [Concomitant]
     Active Substance: BETAMETHASONE DIPROPIONATE
     Indication: PRODUCT USED FOR UNKNOWN INDICATION
     Dosage: 15 G, UNK
     Route: 061
     Dates: start: 20160227
  16. MELOXICAM. [Concomitant]
     Active Substance: MELOXICAM
     Indication: CANCER PAIN
     Dosage: 10 MG, QD
     Route: 065
     Dates: start: 20160107, end: 20160308
  17. FUROSEMIDE. [Concomitant]
     Active Substance: FUROSEMIDE
     Indication: ASCITES
     Dosage: 20 MG, QD
     Route: 048
     Dates: start: 20160209
  18. OXYCONTIN [Concomitant]
     Active Substance: OXYCODONE HYDROCHLORIDE
     Indication: CANCER PAIN
     Dosage: 5 MG, BID
     Route: 048
     Dates: start: 20160209, end: 20160218
  19. YOKUKANSAN [Concomitant]
     Active Substance: HERBALS
     Indication: LIVER DISORDER
     Dosage: 2.5 MG, TID
     Route: 048
     Dates: start: 20160302, end: 20160303
  20. OPSO [Concomitant]
     Active Substance: MORPHINE HYDROCHLORIDE
     Indication: CANCER PAIN
     Dosage: 5 MG, BID
     Route: 048
     Dates: start: 20160218
  21. RINDERON                           /00008501/ [Concomitant]
     Active Substance: BETAMETHASONE
     Indication: DECREASED APPETITE
     Dosage: 0.5 MG, UNK
     Route: 048
     Dates: start: 20160301
  22. TRAMAL [Concomitant]
     Active Substance: TRAMADOL
     Indication: PAIN
     Dosage: 25 MG, QID
     Route: 065
     Dates: start: 20160129, end: 20160209
  23. OXINORM                            /00045603/ [Concomitant]
     Active Substance: OXYCODONE HYDROCHLORIDE
     Indication: CANCER PAIN
     Dosage: 2.5 MG, UNK
     Route: 048
     Dates: start: 20160209, end: 20160218
  24. OPSO [Concomitant]
     Active Substance: MORPHINE HYDROCHLORIDE
     Indication: ABDOMINAL DISTENSION
     Route: 065
  25. FENTOS [Concomitant]
     Active Substance: FENTANYL
     Indication: CANCER PAIN
     Dosage: 2 MG, UNK
     Route: 062
     Dates: start: 20160303
  26. SENNA [Concomitant]
     Active Substance: SENNA LEAF\SENNOSIDES\SENNOSIDES A AND B
     Indication: CONSTIPATION
     Dosage: UNK
     Route: 065
     Dates: start: 20160303
  27. LINTON                             /00008702/ [Concomitant]
     Active Substance: BUTYLSCOPOLAMINE BROMIDE
     Indication: RESTLESSNESS
     Dosage: 2.5 MG, UNK
     Route: 042
     Dates: start: 20160301, end: 20160302

REACTIONS (3)
  - Malignant neoplasm progression [Fatal]
  - Dyspnoea [Recovering/Resolving]
  - Hypothyroidism [Unknown]

NARRATIVE: CASE EVENT DATE: 20160218
